FAERS Safety Report 8440289-5 (Version None)
Quarter: 2012Q2

REPORT INFORMATION
  Report Type: 
  Country: None (occurrence: None)
  Receive Date: 20120615
  Receipt Date: 20120611
  Transmission Date: 20120825
  Serious: Yes (Hospitalization)
  Sender: FDA-Public Use
  Company Number: GB-ROCHE-1077410

PATIENT
  Age: 72 Year
  Sex: Female

DRUGS (8)
  1. RAMIPRIL [Concomitant]
     Route: 048
     Dates: start: 20111221
  2. ALBUTEROL [Concomitant]
     Dates: start: 20120326
  3. LACTULOSE [Concomitant]
     Route: 048
     Dates: start: 20111221
  4. FOSTAIR [Concomitant]
     Dates: start: 20120210
  5. NAPROXEN [Suspect]
     Indication: PRODUCT USED FOR UNKNOWN INDICATION
     Route: 048
     Dates: start: 20111221, end: 20120520
  6. BENDROFLUMETHIAZIDE [Concomitant]
     Route: 048
     Dates: start: 20111221
  7. QUININE SULFATE [Concomitant]
     Route: 048
     Dates: start: 20111221
  8. SENNA-MINT WAF [Concomitant]
     Dosage: AS NECESSARY
     Route: 048
     Dates: start: 20111221

REACTIONS (4)
  - HAEMOGLOBIN DECREASED [None]
  - HAEMATEMESIS [None]
  - DUODENAL ULCER [None]
  - MELAENA [None]
